FAERS Safety Report 18762834 (Version 1)
Quarter: 2021Q1

REPORT INFORMATION
  Report Type: Spontaneous
  Country: US (occurrence: US)
  Receive Date: 20210120
  Receipt Date: 20210120
  Transmission Date: 20210419
  Serious: Yes (Other)
  Sender: FDA-Public Use
  Company Number: None

PATIENT
  Age: 72 Year
  Sex: Female
  Weight: 68.85 kg

DRUGS (15)
  1. FLONASE [Concomitant]
     Active Substance: FLUTICASONE PROPIONATE
  2. GABAPENTIN. [Concomitant]
     Active Substance: GABAPENTIN
  3. MONTELUKAST [Concomitant]
     Active Substance: MONTELUKAST SODIUM
  4. FISH OIL OMEGA?3 [Concomitant]
  5. OSCAL [Concomitant]
     Active Substance: CALCIUM CARBONATE
  6. SYSTANE BALANCE [Concomitant]
     Active Substance: PROPYLENE GLYCOL
  7. VERZENIO [Suspect]
     Active Substance: ABEMACICLIB
     Indication: BREAST CANCER
     Route: 048
     Dates: start: 20201021
  8. VERZENIO [Suspect]
     Active Substance: ABEMACICLIB
     Indication: BONE CANCER
     Route: 048
     Dates: start: 20201021
  9. DOCUSATE [Concomitant]
     Active Substance: DOCUSATE
  10. FEXOFENADINE [Concomitant]
     Active Substance: FEXOFENADINE HYDROCHLORIDE
  11. IBUPROFEN. [Concomitant]
     Active Substance: IBUPROFEN
  12. ONDANSETRON [Concomitant]
     Active Substance: ONDANSETRON
  13. VOLTAREN [Concomitant]
     Active Substance: DICLOFENAC SODIUM
  14. FASLODEX [Concomitant]
     Active Substance: FULVESTRANT
  15. GARLIC OIL [Concomitant]
     Active Substance: GARLIC OIL

REACTIONS (1)
  - Tumour marker increased [None]

NARRATIVE: CASE EVENT DATE: 20210120
